FAERS Safety Report 20196211 (Version 1)
Quarter: 2021Q4

REPORT INFORMATION
  Report Type: Spontaneous
  Country: US (occurrence: US)
  Receive Date: 20211216
  Receipt Date: 20211216
  Transmission Date: 20220303
  Serious: Yes (Disabling, Other)
  Sender: FDA-Public Use
  Company Number: US-SA-SAC20211210001113

PATIENT
  Age: 37 Year
  Sex: Female
  Weight: 63 kg

DRUGS (3)
  1. LEFLUNOMIDE [Suspect]
     Active Substance: LEFLUNOMIDE
     Dosage: UNK
  2. COVID-19 VACCINE NOS [Concomitant]
     Active Substance: COVID-19 VACCINE NOS
     Indication: Immunisation
     Dosage: UNK
     Route: 065
  3. ALBUTEROL [Concomitant]
     Active Substance: ALBUTEROL
     Indication: Asthma
     Dosage: UNK

REACTIONS (11)
  - Antiphospholipid syndrome [Unknown]
  - Bone tuberculosis [Unknown]
  - Leukopenia [Unknown]
  - Radiculopathy [Unknown]
  - Sinus tachycardia [Unknown]
  - Mitral valve prolapse [Unknown]
  - Feeling abnormal [Unknown]
  - Small fibre neuropathy [Unknown]
  - Chillblains [Unknown]
  - Eczema [Unknown]
  - Haemoglobin decreased [Unknown]
